FAERS Safety Report 15704194 (Version 2)
Quarter: 2018Q4

REPORT INFORMATION
  Report Type: Spontaneous
  Country: US (occurrence: US)
  Receive Date: 20181210
  Receipt Date: 20181211
  Transmission Date: 20190205
  Serious: Yes (Other)
  Sender: FDA-Public Use
  Company Number: US-ALEMBIC PHARMACUETICALS LIMITED-2018SCAL000905

PATIENT

DRUGS (3)
  1. DOXYCYCLINE. [Suspect]
     Active Substance: DOXYCYCLINE
     Indication: POSTOPERATIVE WOUND INFECTION
     Dosage: UNK
  2. HYDROXYCHLOROQUINE [Concomitant]
     Active Substance: HYDROXYCHLOROQUINE
     Indication: BUTTERFLY RASH
     Dosage: UNK
  3. HYDROXYCHLOROQUINE [Concomitant]
     Active Substance: HYDROXYCHLOROQUINE
     Indication: ARTHRALGIA

REACTIONS (6)
  - Toxic epidermal necrolysis [Unknown]
  - Ulcerative keratitis [Recovered/Resolved]
  - Onychomadesis [Unknown]
  - Conjunctivitis [Recovered/Resolved]
  - Keratitis [Recovered/Resolved]
  - Neuropathy peripheral [Recovered/Resolved]
